FAERS Safety Report 9307135 (Version 1)
Quarter: 2013Q2

REPORT INFORMATION
  Report Type: Spontaneous
  Country: US (occurrence: US)
  Receive Date: 20130524
  Receipt Date: 20130524
  Transmission Date: 20140414
  Serious: Yes (Other)
  Sender: FDA-Public Use
  Company Number: US-AMGEN-USASP2013035603

PATIENT
  Age: 73 Year
  Sex: Male

DRUGS (10)
  1. XGEVA [Suspect]
     Indication: PROSTATE CANCER METASTATIC
     Dosage: 120 MG, Q4WK
     Dates: start: 201110
  2. MEGESTROL ACETATE [Concomitant]
  3. OXYBUTYNIN CHLORIDE [Concomitant]
  4. SYNTHROID [Concomitant]
  5. VITAMIN B COMPLEX [Concomitant]
  6. CALCIUM [Concomitant]
  7. VITAMIN D                          /00107901/ [Concomitant]
  8. COLACE [Concomitant]
  9. FLOMAX                             /00889901/ [Concomitant]
  10. FERROUS SULFATE [Concomitant]

REACTIONS (1)
  - Osteonecrosis of jaw [Unknown]
